FAERS Safety Report 13444040 (Version 1)
Quarter: 2017Q2

REPORT INFORMATION
  Report Type: Spontaneous
  Country: US (occurrence: US)
  Receive Date: 20170414
  Receipt Date: 20170414
  Transmission Date: 20170830
  Serious: Yes (Other)
  Sender: FDA-Public Use
  Company Number: US-AMGEN-USASP2017055611

PATIENT
  Age: 72 Year
  Sex: Female

DRUGS (1)
  1. PROLIA [Suspect]
     Active Substance: DENOSUMAB
     Indication: OSTEOPOROSIS POSTMENOPAUSAL
     Dosage: UNK
     Route: 065
     Dates: end: 20170201

REACTIONS (4)
  - Osteonecrosis of jaw [Unknown]
  - Rash erythematous [Unknown]
  - Rash pruritic [Unknown]
  - Pain [Unknown]

NARRATIVE: CASE EVENT DATE: 201703
